FAERS Safety Report 9257905 (Version 1)
Quarter: 2013Q2

REPORT INFORMATION
  Report Type: Spontaneous
  Country: US (occurrence: US)
  Receive Date: 20130426
  Receipt Date: 20130426
  Transmission Date: 20140414
  Serious: Yes (Hospitalization)
  Sender: FDA-Public Use
  Company Number: US-GLAXOSMITHKLINE-A1009485A

PATIENT
  Age: 60 Year
  Sex: Female

DRUGS (5)
  1. ZOFRAN [Suspect]
     Indication: NAUSEA
     Dosage: 16MG THREE TIMES PER DAY
     Route: 048
     Dates: start: 2007
  2. OXYCONTIN [Concomitant]
  3. OXYCODONE [Concomitant]
  4. MELOXICAM [Concomitant]
  5. LORAZEPAM [Concomitant]

REACTIONS (2)
  - Nausea [Not Recovered/Not Resolved]
  - Drug ineffective [Unknown]
